FAERS Safety Report 10551288 (Version 2)
Quarter: 2014Q4

REPORT INFORMATION
  Report Type: Spontaneous
  Country: FR (occurrence: FR)
  Receive Date: 20141029
  Receipt Date: 20141029
  Transmission Date: 20150529
  Serious: Yes (Other)
  Sender: FDA-Public Use
  Company Number: FR-009507513-1312FRA008642

PATIENT
  Age: 22 Year
  Sex: Female
  Weight: 38 kg

DRUGS (1)
  1. NEXPLANON [Suspect]
     Active Substance: ETONOGESTREL
     Indication: CONTRACEPTION
     Dosage: UNK
     Route: 058
     Dates: start: 20130529

REACTIONS (7)
  - Device dislocation [Recovered/Resolved]
  - Implant site pain [Unknown]
  - Medical device complication [Recovered/Resolved]
  - Complication of device insertion [Recovered/Resolved]
  - Surgery [Recovered/Resolved]
  - Implant site haematoma [Unknown]
  - Implant site haemorrhage [Unknown]

NARRATIVE: CASE EVENT DATE: 20130529
